FAERS Safety Report 5475199-9 (Version None)
Quarter: 2007Q4

REPORT INFORMATION
  Report Type: 
  Country: None (occurrence: None)
  Receive Date: 20071002
  Receipt Date: 20070921
  Transmission Date: 20080405
  Serious: Yes (Other)
  Sender: FDA-Public Use
  Company Number: US-ELI_LILLY_AND_COMPANY-US200709005514

PATIENT
  Age: 72 Year
  Sex: Female

DRUGS (4)
  1. FORTEO [Suspect]
     Dates: start: 20060201, end: 20060801
  2. FORTEO [Suspect]
     Dosage: UNK, UNK
     Dates: start: 20061101
  3. AMBIEN [Concomitant]
  4. DIURETICS [Concomitant]

REACTIONS (5)
  - BLOOD URIC ACID INCREASED [None]
  - FALL [None]
  - HYPOAESTHESIA [None]
  - PAIN IN EXTREMITY [None]
  - PELVIC FRACTURE [None]
